FAERS Safety Report 9252214 (Version 1)
Quarter: 2013Q1

REPORT INFORMATION
  Report Type: Spontaneous
  Country: US (occurrence: None)
  Receive Date: 20130305
  Receipt Date: 20130305
  Transmission Date: 20140127
  Serious: Yes (Other)
  Sender: FDA-Public Use
  Company Number: 163-21880-12081906 (0)

PATIENT
  Age: 47 Year
  Sex: Male

DRUGS (7)
  1. REVLIMID [Suspect]
     Indication: PLASMA CELL MYELOMA
     Dosage: 25 MG, 21 IN 28 D, PO
     Route: 048
     Dates: start: 20090731, end: 20120816
  2. SUPRAX(CEFIXIME) (TABLETS) [Concomitant]
  3. DOXYCYCLINE(DOXYCYCLINE) (UNKNOWN) [Concomitant]
  4. DEXAMETHASONE(DEXAMETHASONE) (TABLETS) [Concomitant]
  5. HYDROCODONE/ACETAMINOPHEN(REMEDEINE) (UNKNOWN) [Concomitant]
  6. ASPIRIN(ACETYLSALICYLIC ACID) (ENTERIC-COATED TABLET) [Concomitant]
  7. VELCADE(BORTEZOMIB) (UNKNOWN) [Concomitant]

REACTIONS (1)
  - No therapeutic response [None]
